FAERS Safety Report 19867552 (Version 1)
Quarter: 2021Q3

REPORT INFORMATION
  Report Type: Spontaneous
  Country: US (occurrence: US)
  Receive Date: 20210921
  Receipt Date: 20210921
  Transmission Date: 20211014
  Serious: Yes (Other)
  Sender: FDA-Public Use
  Company Number: None

PATIENT
  Age: 65 Year
  Sex: Female
  Weight: 77.11 kg

DRUGS (3)
  1. MONISTAT [Suspect]
     Active Substance: MICONAZOLE NITRATE
  2. FLUCONAZOLE. [Concomitant]
     Active Substance: FLUCONAZOLE
  3. CLOBETASOL PROPIONATE OINTMENT [Suspect]
     Active Substance: CLOBETASOL PROPIONATE
     Indication: URINARY TRACT INFECTION
     Dosage: ?          OTHER STRENGTH:.005 PERCENT ;QUANTITY:3 TUBES ;?
     Route: 061
     Dates: start: 202107

REACTIONS (1)
  - Emergency care [None]
